FAERS Safety Report 25346306 (Version 1)
Quarter: 2025Q2

REPORT INFORMATION
  Report Type: Report from Study
  Country: CN (occurrence: CN)
  Receive Date: 20250522
  Receipt Date: 20250522
  Transmission Date: 20250716
  Serious: Yes (Other)
  Sender: UCB
  Company Number: CN-NEUROGEN (ZHUHAI) PHARMA CO., LTD.-2025NG01127

PATIENT

DRUGS (2)
  1. LEVETIRACETAM [Suspect]
     Active Substance: LEVETIRACETAM
     Indication: Epilepsy
     Dosage: ONCE 20 TO 30 MG/KG, TWICE DAILY
     Route: 048
  2. HERBAL NOS [Suspect]
     Active Substance: HERBALS
     Indication: Epilepsy
     Route: 048

REACTIONS (6)
  - Renal impairment [Unknown]
  - Hepatic function abnormal [Unknown]
  - Dizziness [Unknown]
  - Somnolence [Unknown]
  - Prothrombin time abnormal [Unknown]
  - Drug ineffective [Unknown]
